FAERS Safety Report 23034722 (Version 1)
Quarter: 2023Q4

REPORT INFORMATION
  Report Type: Spontaneous
  Country: CN (occurrence: CN)
  Receive Date: 20231005
  Receipt Date: 20231005
  Transmission Date: 20240110
  Serious: Yes (Hospitalization, Other)
  Sender: FDA-Public Use
  Company Number: CN-009507513-2310CHN000171

PATIENT
  Age: 65 Year
  Sex: Male
  Weight: 50 kg

DRUGS (35)
  1. KEYTRUDA [Suspect]
     Active Substance: PEMBROLIZUMAB
     Indication: Lung neoplasm malignant
     Dosage: 200 MG, Q3W
     Route: 041
     Dates: start: 20220409, end: 20220409
  2. KEYTRUDA [Suspect]
     Active Substance: PEMBROLIZUMAB
     Indication: Neoplasm malignant
     Dosage: 200 MG, Q3W
     Route: 041
     Dates: start: 20220429, end: 20220429
  3. KEYTRUDA [Suspect]
     Active Substance: PEMBROLIZUMAB
     Indication: Haemangioma of liver
     Dosage: 200 MG, Q3W
     Route: 041
     Dates: start: 20220607, end: 20220607
  4. KEYTRUDA [Suspect]
     Active Substance: PEMBROLIZUMAB
     Dosage: 200 MG, Q3W
     Route: 041
     Dates: start: 20220701, end: 20220701
  5. KEYTRUDA [Suspect]
     Active Substance: PEMBROLIZUMAB
     Dosage: 200 MG, Q3W
     Route: 041
     Dates: start: 20220715, end: 20220715
  6. KEYTRUDA [Suspect]
     Active Substance: PEMBROLIZUMAB
     Dosage: 200 MG, Q3W
     Route: 041
     Dates: start: 20220823, end: 20220823
  7. KEYTRUDA [Suspect]
     Active Substance: PEMBROLIZUMAB
     Dosage: 200 MG, Q3W
     Route: 041
     Dates: start: 20221109, end: 20221109
  8. KEYTRUDA [Suspect]
     Active Substance: PEMBROLIZUMAB
     Dosage: 200 MG, Q3W
     Route: 041
     Dates: start: 20221207, end: 20221207
  9. KEYTRUDA [Suspect]
     Active Substance: PEMBROLIZUMAB
     Dosage: 200 MG, Q3W
     Route: 041
     Dates: start: 20230111, end: 20230111
  10. KEYTRUDA [Suspect]
     Active Substance: PEMBROLIZUMAB
     Dosage: 200 MG, Q3W
     Route: 041
     Dates: start: 20230215, end: 20230215
  11. KEYTRUDA [Suspect]
     Active Substance: PEMBROLIZUMAB
     Dosage: 200 MG, Q3W
     Route: 041
     Dates: start: 20230331, end: 20230331
  12. KEYTRUDA [Suspect]
     Active Substance: PEMBROLIZUMAB
     Dosage: 100 MG, Q3W
     Route: 041
     Dates: start: 20230715, end: 20230715
  13. PACLITAXEL [Concomitant]
     Active Substance: PACLITAXEL
     Indication: Lung neoplasm malignant
     Dosage: 400 MG, Q3W
     Route: 041
     Dates: start: 20220409, end: 20220409
  14. PACLITAXEL [Concomitant]
     Active Substance: PACLITAXEL
     Indication: Neoplasm malignant
     Dosage: 400 MG, Q3W
     Route: 041
     Dates: start: 20220429, end: 20220429
  15. PACLITAXEL [Concomitant]
     Active Substance: PACLITAXEL
     Indication: Lung opacity
     Dosage: 400 MG, Q3W
     Route: 041
     Dates: start: 20220607, end: 20220607
  16. PACLITAXEL [Concomitant]
     Active Substance: PACLITAXEL
     Dosage: 400 MG, Q3W
     Route: 041
     Dates: start: 20220701, end: 20220701
  17. PACLITAXEL [Concomitant]
     Active Substance: PACLITAXEL
     Dosage: 400 MG, Q3W
     Route: 041
     Dates: start: 20220823, end: 20220823
  18. PACLITAXEL [Concomitant]
     Active Substance: PACLITAXEL
     Dosage: 400 MG, Q3W
     Route: 041
     Dates: start: 20221109, end: 20221109
  19. PACLITAXEL [Concomitant]
     Active Substance: PACLITAXEL
     Dosage: 400 MG, Q3W
     Route: 041
     Dates: start: 20221207, end: 20221207
  20. PACLITAXEL [Concomitant]
     Active Substance: PACLITAXEL
     Dosage: 400 MG, Q3W
     Route: 041
     Dates: start: 20230111, end: 20230111
  21. PACLITAXEL [Concomitant]
     Active Substance: PACLITAXEL
     Dosage: 400 MG, Q3W
     Route: 041
     Dates: start: 20230215, end: 20230215
  22. PACLITAXEL [Concomitant]
     Active Substance: PACLITAXEL
     Dosage: 400 MG, Q3W
     Route: 041
     Dates: start: 20230331, end: 20230331
  23. PACLITAXEL [Concomitant]
     Active Substance: PACLITAXEL
     Dosage: 400 MG, Q3W
     Route: 041
     Dates: start: 20230715, end: 20230715
  24. CARBOPLATIN [Concomitant]
     Active Substance: CARBOPLATIN
     Indication: Lung neoplasm malignant
     Dosage: 560 MG, Q3W
     Route: 042
     Dates: start: 20220409, end: 20220409
  25. CARBOPLATIN [Concomitant]
     Active Substance: CARBOPLATIN
     Indication: Neoplasm malignant
     Dosage: 530 MG, Q3W
     Route: 041
     Dates: start: 20230715, end: 20230715
  26. CARBOPLATIN [Concomitant]
     Active Substance: CARBOPLATIN
     Dosage: 530 MG, Q3W
     Route: 041
     Dates: start: 20220429, end: 20220429
  27. CARBOPLATIN [Concomitant]
     Active Substance: CARBOPLATIN
     Dosage: 530 MG, Q3W
     Route: 041
     Dates: start: 20220607, end: 20220607
  28. CARBOPLATIN [Concomitant]
     Active Substance: CARBOPLATIN
     Dosage: 530 MG, Q3W
     Route: 041
     Dates: start: 20220701, end: 20220701
  29. CARBOPLATIN [Concomitant]
     Active Substance: CARBOPLATIN
     Dosage: 530 MG, Q3W
     Route: 041
     Dates: start: 20220823, end: 20220823
  30. CARBOPLATIN [Concomitant]
     Active Substance: CARBOPLATIN
     Dosage: 530 MG, Q3W
     Route: 041
     Dates: start: 20221109, end: 20221109
  31. CARBOPLATIN [Concomitant]
     Active Substance: CARBOPLATIN
     Dosage: 530 MG, Q3W
     Route: 041
     Dates: start: 20221207, end: 20221207
  32. CARBOPLATIN [Concomitant]
     Active Substance: CARBOPLATIN
     Dosage: 530 MG, Q3W
     Route: 041
     Dates: start: 20230111, end: 20230111
  33. CARBOPLATIN [Concomitant]
     Active Substance: CARBOPLATIN
     Dosage: 530 MG, Q3W
     Route: 041
     Dates: start: 20230215, end: 20230215
  34. CARBOPLATIN [Concomitant]
     Active Substance: CARBOPLATIN
     Dosage: 530 MG, Q3W
     Route: 041
     Dates: start: 20230331, end: 20230331
  35. CARBOPLATIN [Concomitant]
     Active Substance: CARBOPLATIN
     Dosage: 530 MG, Q3W
     Route: 041
     Dates: start: 20230715, end: 20230715

REACTIONS (16)
  - Bronchiectasis [Unknown]
  - Immune-mediated cystitis [Unknown]
  - Interstitial lung disease [Recovering/Resolving]
  - Inappropriate schedule of product administration [Unknown]
  - Inappropriate schedule of product administration [Unknown]
  - Inappropriate schedule of product administration [Unknown]
  - Inappropriate schedule of product administration [Unknown]
  - Inappropriate schedule of product administration [Unknown]
  - Inappropriate schedule of product administration [Unknown]
  - Inappropriate schedule of product administration [Unknown]
  - Inappropriate schedule of product administration [Unknown]
  - Inappropriate schedule of product administration [Unknown]
  - Expired product administered [Unknown]
  - Inappropriate schedule of product administration [Unknown]
  - Product use in unapproved indication [Unknown]
  - Underdose [Unknown]

NARRATIVE: CASE EVENT DATE: 20220101
